FAERS Safety Report 21958276 (Version 1)
Quarter: 2023Q1

REPORT INFORMATION
  Report Type: Spontaneous
  Country: IN (occurrence: IN)
  Receive Date: 20230206
  Receipt Date: 20230206
  Transmission Date: 20230418
  Serious: Yes (Hospitalization)
  Sender: FDA-Public Use
  Company Number: IN-BEXIMCO-2023BEX00004

PATIENT
  Age: 65 Year
  Sex: Female

DRUGS (1)
  1. BACLOFEN [Suspect]
     Active Substance: BACLOFEN
     Indication: Hiccups
     Dosage: 10 MG, 3X/DAY
     Route: 048

REACTIONS (4)
  - Neurotoxicity [Recovered/Resolved]
  - Hypotonia [Recovered/Resolved]
  - Aphasia [Recovered/Resolved]
  - Confabulation [Recovered/Resolved]
